FAERS Safety Report 13302756 (Version 1)
Quarter: 2017Q1

REPORT INFORMATION
  Report Type: Spontaneous
  Country: US (occurrence: US)
  Receive Date: 20170307
  Receipt Date: 20170307
  Transmission Date: 20170428
  Serious: Yes (Hospitalization, Other)
  Sender: FDA-Public Use
  Company Number: US-CONCORDIA LABORATORIES INC.-PIN-2016-00053

PATIENT
  Age: 51 Year
  Sex: Male
  Weight: 61.29 kg

DRUGS (16)
  1. DEXAMETHASONE. [Concomitant]
     Active Substance: DEXAMETHASONE
  2. PEMETREXED [Concomitant]
     Active Substance: PEMETREXED
     Indication: LUNG NEOPLASM MALIGNANT
     Route: 042
     Dates: start: 20160803
  3. AVASTIN [Concomitant]
     Active Substance: BEVACIZUMAB
     Indication: LUNG NEOPLASM MALIGNANT
  4. TUSSIONEX PENNKINETIC [Concomitant]
     Active Substance: CHLORPHENIRAMINE\HYDROCODONE
     Route: 048
  5. ZOMETA [Concomitant]
     Active Substance: ZOLEDRONIC ACID
     Route: 042
     Dates: start: 20160803
  6. LEVOFLOXACIN. [Concomitant]
     Active Substance: LEVOFLOXACIN
  7. ACETAMINOPHEN W/ HYDROCODONE [Concomitant]
     Active Substance: ACETAMINOPHEN\HYDROCODONE
  8. CARBOPLATIN. [Concomitant]
     Active Substance: CARBOPLATIN
     Indication: LUNG NEOPLASM MALIGNANT
  9. LORAZEPAM. [Concomitant]
     Active Substance: LORAZEPAM
  10. GABAPENTIN. [Concomitant]
     Active Substance: GABAPENTIN
  11. MULTIVITAMIN [Concomitant]
     Active Substance: VITAMINS
  12. FOLIC ACID. [Concomitant]
     Active Substance: FOLIC ACID
  13. PALONOSETRON [Concomitant]
     Active Substance: PALONOSETRON
     Route: 042
     Dates: start: 20160803
  14. PHOTOFRIN [Suspect]
     Active Substance: PORFIMER SODIUM
     Indication: LUNG NEOPLASM MALIGNANT
     Route: 042
     Dates: start: 20160930
  15. ONDANSETRON [Concomitant]
     Active Substance: ONDANSETRON
  16. PHOTOFRIN [Suspect]
     Active Substance: PORFIMER SODIUM
     Indication: LUNG NEOPLASM MALIGNANT

REACTIONS (5)
  - Cough [Unknown]
  - Pneumonia staphylococcal [Unknown]
  - Chest pain [Recovering/Resolving]
  - Pericardial effusion [Unknown]
  - Thrombosis [Unknown]

NARRATIVE: CASE EVENT DATE: 20161020
